FAERS Safety Report 7809193-7 (Version None)
Quarter: 2011Q4

REPORT INFORMATION
  Report Type: 
  Country: None (occurrence: None)
  Receive Date: 20111012
  Receipt Date: 20111007
  Transmission Date: 20120403
  Serious: Yes (Other)
  Sender: FDA-Public Use
  Company Number: US-AMGEN-USASP2011031117

PATIENT
  Age: 62 Year
  Sex: Female

DRUGS (2)
  1. ARAVA [Concomitant]
     Dosage: 1 MG, QD
     Dates: start: 20090101
  2. ENBREL [Suspect]
     Indication: RHEUMATOID ARTHRITIS
     Dosage: 50 MG, QWK
     Dates: start: 20110415

REACTIONS (15)
  - RHEUMATOID ARTHRITIS [None]
  - SINUS CONGESTION [None]
  - INJECTION SITE PAIN [None]
  - URINARY TRACT INFECTION [None]
  - INJECTION SITE HAEMATOMA [None]
  - INJECTION SITE PRURITUS [None]
  - INTERVERTEBRAL DISC PROTRUSION [None]
  - COUGH [None]
  - INCREASED UPPER AIRWAY SECRETION [None]
  - INJECTION SITE SWELLING [None]
  - CONDITION AGGRAVATED [None]
  - NASAL CONGESTION [None]
  - KIDNEY INFECTION [None]
  - INJECTION SITE ERYTHEMA [None]
  - NASOPHARYNGITIS [None]
